FAERS Safety Report 4426224-5 (Version None)
Quarter: 2004Q3

REPORT INFORMATION
  Report Type: 
  Country: None (occurrence: None)
  Receive Date: 20040811
  Receipt Date: 20040722
  Transmission Date: 20050211
  Serious: Yes (Death)
  Sender: FDA-Public Use
  Company Number: EWC040539355

PATIENT
  Age: 55 Year
  Sex: Female
  Weight: 75 kg

DRUGS (6)
  1. ZYPREXA [Suspect]
     Indication: EXCITABILITY
     Dosage: 30 MG DAY
     Dates: start: 20040506, end: 20040506
  2. ZYPREXA [Suspect]
     Indication: MANIA
     Dosage: 30 MG DAY
     Dates: start: 20040506, end: 20040506
  3. LORAZEPAM [Concomitant]
  4. CHLORPROMAZINE [Concomitant]
  5. TALOFEN (PROMAZINE HYDROCHLORIDE) [Concomitant]
  6. FARGANESSE (PROMETHAZINE HYDROCHLORIDE) [Concomitant]

REACTIONS (2)
  - CARDIAC ARREST [None]
  - CARDIOVASCULAR DISORDER [None]
